FAERS Safety Report 16356268 (Version 5)
Quarter: 2019Q3

REPORT INFORMATION
  Report Type: Report from Study
  Country: JP (occurrence: JP)
  Receive Date: 20190527
  Receipt Date: 20190912
  Transmission Date: 20191004
  Serious: Yes (Death, Hospitalization, Other)
  Sender: FDA-Public Use
  Company Number: JP-BRISTOL-MYERS SQUIBB COMPANY-BMS-2019-050890

PATIENT
  Age: 35 Year
  Sex: Male
  Weight: 76 kg

DRUGS (2)
  1. IPILIMUMAB [Suspect]
     Active Substance: IPILIMUMAB
     Indication: MALIGNANT MELANOMA
     Dosage: 3 MILLIGRAM/KILOGRAM
     Route: 065
     Dates: start: 20181010, end: 20181010
  2. NIVOLUMAB [Suspect]
     Active Substance: NIVOLUMAB
     Indication: MALIGNANT MELANOMA
     Dosage: 1 DOSAGE FORM= 80 MG/BODY
     Route: 065
     Dates: start: 20181010, end: 20181010

REACTIONS (5)
  - Diarrhoea [Unknown]
  - Immune-mediated enterocolitis [Recovering/Resolving]
  - Malignant neoplasm progression [Fatal]
  - Rash pruritic [Unknown]
  - Pyrexia [Unknown]

NARRATIVE: CASE EVENT DATE: 20181014
